FAERS Safety Report 8305642-9 (Version None)
Quarter: 2012Q2

REPORT INFORMATION
  Report Type: 
  Country: None (occurrence: None)
  Receive Date: 20120423
  Receipt Date: 20120418
  Transmission Date: 20120825
  Serious: Yes (Other)
  Sender: FDA-Public Use
  Company Number: IE-PFIZER INC-2012067335

PATIENT
  Sex: Male

DRUGS (4)
  1. ACERYCAL [Concomitant]
     Indication: HYPERTENSION
     Dosage: UNK, 1X/DAY
     Route: 048
  2. BISOPROLOL FUMARATE [Concomitant]
     Indication: HYPERTENSION
     Dosage: 5MG, DAILY
     Route: 048
  3. NU-SEALS [Concomitant]
     Indication: PLATELET DISORDER
     Dosage: 75 MG, DAILY
     Route: 048
  4. LIPITOR [Suspect]
     Indication: BLOOD CHOLESTEROL INCREASED
     Dosage: 80 MG, 1X/DAY
     Route: 048
     Dates: start: 20020202, end: 20120101

REACTIONS (3)
  - EYE SWELLING [None]
  - HOT FLUSH [None]
  - SWELLING FACE [None]
